FAERS Safety Report 9785559 (Version 1)
Quarter: 2013Q4

REPORT INFORMATION
  Report Type: Spontaneous
  Country: JP (occurrence: JP)
  Receive Date: 20131227
  Receipt Date: 20131227
  Transmission Date: 20140711
  Serious: Yes (Hospitalization, Other)
  Sender: FDA-Public Use
  Company Number: JP-ASTELLAS-2013JP014170

PATIENT
  Age: 17 Year
  Sex: Female

DRUGS (9)
  1. PROGRAF [Suspect]
     Indication: GLOMERULONEPHRITIS
     Dosage: UNK
     Route: 048
     Dates: start: 200508
  2. PROGRAF [Suspect]
     Dosage: 3 MG, UNKNOWN/D
     Route: 048
     Dates: end: 2009
  3. PROGRAF [Suspect]
     Dosage: 1 MG, UNKNOWN/D
     Route: 048
     Dates: start: 2009, end: 2009
  4. PROGRAF [Suspect]
     Dosage: 3 MG, UNKNOWN/D
     Route: 048
     Dates: start: 2009
  5. PREDNISOLONE [Suspect]
     Indication: SYSTEMIC LUPUS ERYTHEMATOSUS
     Dosage: UNK
     Route: 048
     Dates: end: 200508
  6. PREDNISOLONE [Suspect]
     Dosage: 35 MG, UNKNOWN/D
     Route: 048
     Dates: start: 200508, end: 200508
  7. PREDNISOLONE [Suspect]
     Dosage: UNK
     Route: 048
     Dates: start: 200508
  8. PREDNISOLONE [Suspect]
     Dosage: 15 MG, UNKNOWN/D
     Route: 048
  9. CICLOSPORIN [Concomitant]
     Indication: SYSTEMIC LUPUS ERYTHEMATOSUS
     Dosage: 150 MG, UNKNOWN/D
     Route: 048

REACTIONS (3)
  - Off label use [Unknown]
  - Aspergilloma [Unknown]
  - Febrile neutropenia [Recovering/Resolving]
